FAERS Safety Report 17620828 (Version 1)
Quarter: 2020Q2

REPORT INFORMATION
  Report Type: Spontaneous
  Country: FR (occurrence: FR)
  Receive Date: 20200403
  Receipt Date: 20200403
  Transmission Date: 20200713
  Serious: Yes (Death, Hospitalization)
  Sender: FDA-Public Use
  Company Number: FR-ACCORD-178066

PATIENT
  Age: 64 Year
  Sex: Female

DRUGS (11)
  1. PREGABALIN. [Concomitant]
     Active Substance: PREGABALIN
     Route: 048
     Dates: start: 20191122
  2. BACTRIM [Concomitant]
     Active Substance: SULFAMETHOXAZOLE\TRIMETHOPRIM
     Route: 042
     Dates: start: 20191122
  3. FILGRASTIM [Concomitant]
     Active Substance: FILGRASTIM
     Route: 042
     Dates: start: 20191122
  4. PANTOPRAZOLE [Concomitant]
     Active Substance: PANTOPRAZOLE
     Route: 042
     Dates: start: 20191122
  5. PRIMPERAN [Concomitant]
     Active Substance: METOCLOPRAMIDE HYDROCHLORIDE
     Dosage: 10 MG/2 ML,
     Route: 042
     Dates: start: 20191122
  6. ZOPHREN [Concomitant]
     Active Substance: ONDANSETRON
     Dosage: 4 MG/2 ML,SOLUTION INJECTABLE IN PRE-FILLED SYRINGE
     Route: 042
     Dates: start: 20191122
  7. METHOTREXATE. [Suspect]
     Active Substance: METHOTREXATE
     Indication: BURKITT^S LYMPHOMA
     Route: 065
     Dates: start: 20191003
  8. ACICLOVIR [Concomitant]
     Active Substance: ACYCLOVIR
     Route: 042
     Dates: start: 20191122
  9. INSULIN PORCINE [Concomitant]
     Active Substance: INSULIN PORK\INSULIN PURIFIED PORK
     Route: 065
     Dates: start: 20191122
  10. ALVITYL [Concomitant]
     Active Substance: VITAMINS
     Route: 048
     Dates: start: 20191122
  11. MORPHINE [Concomitant]
     Active Substance: MORPHINE
     Dosage: SI BESOIN
     Route: 042
     Dates: start: 20191122

REACTIONS (2)
  - Condition aggravated [Fatal]
  - Lung disorder [Fatal]

NARRATIVE: CASE EVENT DATE: 20191004
